FAERS Safety Report 9841440 (Version 1)
Quarter: 2014Q1

REPORT INFORMATION
  Report Type: Spontaneous
  Country: GB (occurrence: GB)
  Receive Date: 20140124
  Receipt Date: 20140124
  Transmission Date: 20141002
  Serious: Yes (Disabling, Other)
  Sender: FDA-Public Use
  Company Number: GB-ABBVIE-14P-167-1191856-00

PATIENT
  Sex: Female

DRUGS (2)
  1. HUMIRA [Suspect]
     Indication: RHEUMATOID ARTHRITIS
     Route: 058
     Dates: start: 201310
  2. LEVOTHYROXINE [Concomitant]
     Indication: AUTOIMMUNE THYROIDITIS
     Dosage: UNKNOWN
     Route: 065

REACTIONS (6)
  - Eye disorder [Not Recovered/Not Resolved]
  - Rash pruritic [Not Recovered/Not Resolved]
  - Alopecia [Not Recovered/Not Resolved]
  - Eye pruritus [Not Recovered/Not Resolved]
  - Vision blurred [Not Recovered/Not Resolved]
  - Rash papular [Not Recovered/Not Resolved]
